FAERS Safety Report 11626307 (Version 2)
Quarter: 2015Q4

REPORT INFORMATION
  Report Type: Spontaneous
  Country: US (occurrence: US)
  Receive Date: 20151013
  Receipt Date: 20151028
  Transmission Date: 20160304
  Serious: Yes (Other)
  Sender: FDA-Public Use
  Company Number: US-GLAXOSMITHKLINE-US2015GSK145263

PATIENT
  Age: 59 Year
  Sex: Female
  Weight: 112.2 kg

DRUGS (1)
  1. BREO ELLIPTA [Suspect]
     Active Substance: FLUTICASONE FUROATE\VILANTEROL TRIFENATATE
     Indication: ASTHMA
     Dosage: UNK
     Dates: start: 20151007, end: 20151007

REACTIONS (1)
  - Bronchospasm paradoxical [Recovered/Resolved]

NARRATIVE: CASE EVENT DATE: 20151007
